FAERS Safety Report 4301334-1 (Version None)
Quarter: 2004Q1

REPORT INFORMATION
  Report Type: 
  Country: None (occurrence: None)
  Receive Date: 20040223
  Receipt Date: 20030227
  Transmission Date: 20041129
  Serious: No
  Sender: FDA-Public Use
  Company Number: US-GLAXOSMITHKLINE-A0398456A

PATIENT
  Age: 47 Year
  Sex: Female

DRUGS (1)
  1. NAVELBINE [Suspect]
     Dosage: 40MG SEE DOSAGE TEXT
     Route: 042
     Dates: start: 20030219, end: 20030219

REACTIONS (2)
  - BLISTER [None]
  - VASODILATATION [None]
